FAERS Safety Report 25030445 (Version 1)
Quarter: 2025Q1

REPORT INFORMATION
  Report Type: Spontaneous
  Country: CA (occurrence: CA)
  Receive Date: 20250303
  Receipt Date: 20250303
  Transmission Date: 20250409
  Serious: Yes (Other)
  Sender: CELLTRION
  Company Number: CA-CELLTRION INC.-2025CA005220

PATIENT

DRUGS (629)
  1. ADALIMUMAB [Suspect]
     Active Substance: ADALIMUMAB
     Indication: Crohn^s disease
  2. ADALIMUMAB [Suspect]
     Active Substance: ADALIMUMAB
     Indication: Colitis ulcerative
  3. ADALIMUMAB [Suspect]
     Active Substance: ADALIMUMAB
     Indication: Deep vein thrombosis
  4. ADALIMUMAB [Suspect]
     Active Substance: ADALIMUMAB
  5. ADALIMUMAB [Suspect]
     Active Substance: ADALIMUMAB
     Route: 048
  6. ADALIMUMAB [Suspect]
     Active Substance: ADALIMUMAB
  7. ADALIMUMAB [Suspect]
     Active Substance: ADALIMUMAB
     Route: 048
  8. ADALIMUMAB [Suspect]
     Active Substance: ADALIMUMAB
     Route: 048
  9. ADALIMUMAB [Suspect]
     Active Substance: ADALIMUMAB
     Route: 048
  10. ADALIMUMAB [Suspect]
     Active Substance: ADALIMUMAB
     Route: 048
  11. ADALIMUMAB [Suspect]
     Active Substance: ADALIMUMAB
     Route: 048
  12. ADALIMUMAB [Suspect]
     Active Substance: ADALIMUMAB
     Route: 048
  13. ADALIMUMAB [Suspect]
     Active Substance: ADALIMUMAB
     Route: 048
  14. ASPIRIN [Suspect]
     Active Substance: ASPIRIN
     Indication: Product used for unknown indication
  15. ASPIRIN [Suspect]
     Active Substance: ASPIRIN
  16. ASPIRIN [Suspect]
     Active Substance: ASPIRIN
  17. ASPIRIN [Suspect]
     Active Substance: ASPIRIN
  18. ASPIRIN [Suspect]
     Active Substance: ASPIRIN
  19. ASPIRIN [Suspect]
     Active Substance: ASPIRIN
  20. ALBENDAZOLE [Suspect]
     Active Substance: ALBENDAZOLE
     Indication: Colitis ulcerative
     Route: 042
  21. ALBENDAZOLE [Suspect]
     Active Substance: ALBENDAZOLE
     Indication: Deep vein thrombosis
     Route: 042
  22. BUDESONIDE [Suspect]
     Active Substance: BUDESONIDE
     Indication: Product used for unknown indication
     Route: 048
  23. BUDESONIDE [Suspect]
     Active Substance: BUDESONIDE
     Route: 048
  24. BUDESONIDE [Suspect]
     Active Substance: BUDESONIDE
     Route: 048
  25. BUDESONIDE [Suspect]
     Active Substance: BUDESONIDE
     Route: 048
  26. BUDESONIDE [Suspect]
     Active Substance: BUDESONIDE
     Route: 048
  27. BUDESONIDE [Suspect]
     Active Substance: BUDESONIDE
     Route: 048
  28. BUDESONIDE [Suspect]
     Active Substance: BUDESONIDE
     Route: 048
  29. BUDESONIDE [Suspect]
     Active Substance: BUDESONIDE
     Route: 048
  30. BUDESONIDE [Suspect]
     Active Substance: BUDESONIDE
     Route: 048
  31. BUDESONIDE [Suspect]
     Active Substance: BUDESONIDE
     Route: 048
  32. BUDESONIDE [Suspect]
     Active Substance: BUDESONIDE
     Route: 048
  33. BUDESONIDE [Suspect]
     Active Substance: BUDESONIDE
     Route: 048
  34. BUDESONIDE [Suspect]
     Active Substance: BUDESONIDE
     Route: 048
  35. BUDESONIDE [Suspect]
     Active Substance: BUDESONIDE
     Route: 048
  36. BUDESONIDE [Suspect]
     Active Substance: BUDESONIDE
     Route: 048
  37. BUDESONIDE [Suspect]
     Active Substance: BUDESONIDE
     Route: 048
  38. BUDESONIDE [Suspect]
     Active Substance: BUDESONIDE
     Route: 048
  39. BUDESONIDE [Suspect]
     Active Substance: BUDESONIDE
     Route: 048
  40. BUDESONIDE [Suspect]
     Active Substance: BUDESONIDE
     Route: 048
  41. BUDESONIDE [Suspect]
     Active Substance: BUDESONIDE
     Route: 048
  42. BUDESONIDE [Suspect]
     Active Substance: BUDESONIDE
     Route: 048
  43. BUDESONIDE [Suspect]
     Active Substance: BUDESONIDE
     Route: 048
  44. BUDESONIDE [Suspect]
     Active Substance: BUDESONIDE
     Route: 048
  45. BUDESONIDE [Suspect]
     Active Substance: BUDESONIDE
     Route: 048
  46. BUDESONIDE [Suspect]
     Active Substance: BUDESONIDE
     Route: 048
  47. BUDESONIDE [Suspect]
     Active Substance: BUDESONIDE
     Route: 048
  48. BUDESONIDE [Suspect]
     Active Substance: BUDESONIDE
     Route: 048
  49. BUDESONIDE [Suspect]
     Active Substance: BUDESONIDE
     Route: 048
  50. BUDESONIDE [Suspect]
     Active Substance: BUDESONIDE
     Route: 048
  51. BUDESONIDE [Suspect]
     Active Substance: BUDESONIDE
     Route: 048
  52. BUDESONIDE [Suspect]
     Active Substance: BUDESONIDE
     Route: 048
  53. BUDESONIDE [Suspect]
     Active Substance: BUDESONIDE
     Route: 048
  54. BUDESONIDE [Suspect]
     Active Substance: BUDESONIDE
     Route: 048
  55. BUDESONIDE [Suspect]
     Active Substance: BUDESONIDE
     Route: 048
  56. BUDESONIDE [Suspect]
     Active Substance: BUDESONIDE
     Route: 048
  57. CANDESARTAN [Suspect]
     Active Substance: CANDESARTAN
     Indication: Product used for unknown indication
     Route: 048
  58. AZD-1222 [Suspect]
     Active Substance: AZD-1222
     Indication: COVID-19 immunisation
  59. AZD-1222 [Suspect]
     Active Substance: AZD-1222
  60. AZD-1222 [Suspect]
     Active Substance: AZD-1222
  61. AZD-1222 [Suspect]
     Active Substance: AZD-1222
  62. AZD-1222 [Suspect]
     Active Substance: AZD-1222
  63. AZD-1222 [Suspect]
     Active Substance: AZD-1222
  64. AZD-1222 [Suspect]
     Active Substance: AZD-1222
  65. AZD-1222 [Suspect]
     Active Substance: AZD-1222
  66. AZD-1222 [Suspect]
     Active Substance: AZD-1222
  67. AZD-1222 [Suspect]
     Active Substance: AZD-1222
  68. AZD-1222 [Suspect]
     Active Substance: AZD-1222
  69. AZD-1222 [Suspect]
     Active Substance: AZD-1222
  70. AZD-1222 [Suspect]
     Active Substance: AZD-1222
  71. AZD-1222 [Suspect]
     Active Substance: AZD-1222
  72. AZD-1222 [Suspect]
     Active Substance: AZD-1222
  73. AZD-1222 [Suspect]
     Active Substance: AZD-1222
  74. AZD-1222 [Suspect]
     Active Substance: AZD-1222
  75. DAPAGLIFLOZIN [Suspect]
     Active Substance: DAPAGLIFLOZIN
     Indication: Ill-defined disorder
     Route: 048
  76. DAPAGLIFLOZIN [Suspect]
     Active Substance: DAPAGLIFLOZIN
     Route: 048
  77. DAPAGLIFLOZIN [Suspect]
     Active Substance: DAPAGLIFLOZIN
  78. DAPAGLIFLOZIN [Suspect]
     Active Substance: DAPAGLIFLOZIN
     Route: 048
  79. DAPAGLIFLOZIN [Suspect]
     Active Substance: DAPAGLIFLOZIN
  80. DAPAGLIFLOZIN [Suspect]
     Active Substance: DAPAGLIFLOZIN
     Route: 048
  81. DESOXIMETASONE [Suspect]
     Active Substance: DESOXIMETASONE
     Indication: Crohn^s disease
     Route: 048
  82. DESOXIMETASONE [Suspect]
     Active Substance: DESOXIMETASONE
     Indication: Colitis ulcerative
  83. DESOXIMETASONE [Suspect]
     Active Substance: DESOXIMETASONE
     Indication: Crohn^s disease
     Route: 048
  84. DESOXIMETASONE [Suspect]
     Active Substance: DESOXIMETASONE
     Indication: Colitis ulcerative
     Route: 048
  85. DESOXIMETASONE [Suspect]
     Active Substance: DESOXIMETASONE
     Route: 048
  86. DESOXIMETASONE [Suspect]
     Active Substance: DESOXIMETASONE
     Route: 048
  87. DESOXIMETASONE [Suspect]
     Active Substance: DESOXIMETASONE
     Route: 048
  88. DESOXIMETASONE [Suspect]
     Active Substance: DESOXIMETASONE
     Route: 048
  89. DESOXIMETASONE [Suspect]
     Active Substance: DESOXIMETASONE
     Route: 048
  90. DESOXIMETASONE [Suspect]
     Active Substance: DESOXIMETASONE
     Route: 048
  91. DESOXIMETASONE [Suspect]
     Active Substance: DESOXIMETASONE
     Route: 048
  92. DESOXIMETASONE [Suspect]
     Active Substance: DESOXIMETASONE
     Route: 048
  93. DESOXIMETASONE [Suspect]
     Active Substance: DESOXIMETASONE
     Route: 048
  94. DESOXIMETASONE [Suspect]
     Active Substance: DESOXIMETASONE
     Route: 048
  95. DESOXIMETASONE [Suspect]
     Active Substance: DESOXIMETASONE
     Route: 048
  96. DESOXIMETASONE [Suspect]
     Active Substance: DESOXIMETASONE
     Route: 048
  97. DESOXIMETASONE [Suspect]
     Active Substance: DESOXIMETASONE
     Route: 048
  98. DESOXIMETASONE [Suspect]
     Active Substance: DESOXIMETASONE
     Route: 048
  99. DESOXIMETASONE [Suspect]
     Active Substance: DESOXIMETASONE
     Route: 048
  100. DESOXIMETASONE [Suspect]
     Active Substance: DESOXIMETASONE
     Route: 048
  101. DESOXIMETASONE [Suspect]
     Active Substance: DESOXIMETASONE
     Route: 048
  102. DESOXIMETASONE [Suspect]
     Active Substance: DESOXIMETASONE
     Route: 048
  103. DESOXIMETASONE [Suspect]
     Active Substance: DESOXIMETASONE
     Route: 048
  104. DESOXIMETASONE [Suspect]
     Active Substance: DESOXIMETASONE
     Route: 048
  105. DESOXIMETASONE [Suspect]
     Active Substance: DESOXIMETASONE
     Route: 048
  106. DESOXIMETASONE [Suspect]
     Active Substance: DESOXIMETASONE
     Route: 048
  107. DESOXIMETASONE [Suspect]
     Active Substance: DESOXIMETASONE
     Route: 048
  108. DESOXIMETASONE [Suspect]
     Active Substance: DESOXIMETASONE
     Route: 048
  109. DESOXIMETASONE [Suspect]
     Active Substance: DESOXIMETASONE
     Route: 048
  110. DESOXIMETASONE [Suspect]
     Active Substance: DESOXIMETASONE
     Route: 048
  111. DESOXIMETASONE [Suspect]
     Active Substance: DESOXIMETASONE
     Route: 048
  112. DESOXIMETASONE [Suspect]
     Active Substance: DESOXIMETASONE
     Route: 048
  113. DESOXIMETASONE [Suspect]
     Active Substance: DESOXIMETASONE
     Route: 048
  114. DESOXIMETASONE [Suspect]
     Active Substance: DESOXIMETASONE
     Route: 048
  115. DESOXIMETASONE [Suspect]
     Active Substance: DESOXIMETASONE
     Route: 048
  116. DESOXIMETASONE [Suspect]
     Active Substance: DESOXIMETASONE
     Route: 048
  117. DESOXIMETASONE [Suspect]
     Active Substance: DESOXIMETASONE
     Route: 048
  118. DESOXIMETASONE [Suspect]
     Active Substance: DESOXIMETASONE
     Route: 048
  119. DESOXIMETASONE [Suspect]
     Active Substance: DESOXIMETASONE
     Route: 048
  120. DESOXIMETASONE [Suspect]
     Active Substance: DESOXIMETASONE
     Route: 042
  121. DESOXIMETASONE [Suspect]
     Active Substance: DESOXIMETASONE
     Route: 042
  122. DESOXIMETASONE [Suspect]
     Active Substance: DESOXIMETASONE
     Route: 042
  123. DESOXIMETASONE [Suspect]
     Active Substance: DESOXIMETASONE
     Route: 042
  124. DESOXIMETASONE [Suspect]
     Active Substance: DESOXIMETASONE
     Route: 048
  125. DESOXIMETASONE [Suspect]
     Active Substance: DESOXIMETASONE
     Route: 048
  126. DESOXIMETASONE [Suspect]
     Active Substance: DESOXIMETASONE
     Route: 048
  127. DESOXIMETASONE [Suspect]
     Active Substance: DESOXIMETASONE
     Route: 048
  128. DESOXIMETASONE [Suspect]
     Active Substance: DESOXIMETASONE
     Route: 048
  129. DESOXIMETASONE [Suspect]
     Active Substance: DESOXIMETASONE
     Route: 048
  130. DESOXIMETASONE [Suspect]
     Active Substance: DESOXIMETASONE
     Route: 048
  131. DESOXIMETASONE [Suspect]
     Active Substance: DESOXIMETASONE
     Route: 048
  132. DESOXIMETASONE [Suspect]
     Active Substance: DESOXIMETASONE
     Route: 048
  133. DESOXIMETASONE [Suspect]
     Active Substance: DESOXIMETASONE
     Indication: Crohn^s disease
     Route: 048
  134. DESOXIMETASONE [Suspect]
     Active Substance: DESOXIMETASONE
     Indication: Colitis ulcerative
  135. EPINEPHRINE HYDROCHLORIDE [Suspect]
     Active Substance: EPINEPHRINE HYDROCHLORIDE
     Indication: Product used for unknown indication
  136. ESCITALOPRAM [Suspect]
     Active Substance: ESCITALOPRAM OXALATE
     Indication: Product used for unknown indication
  137. ESCITALOPRAM [Suspect]
     Active Substance: ESCITALOPRAM OXALATE
  138. ESCITALOPRAM [Suspect]
     Active Substance: ESCITALOPRAM OXALATE
  139. ESCITALOPRAM [Suspect]
     Active Substance: ESCITALOPRAM OXALATE
  140. ESOMEPRAZOLE [Suspect]
     Active Substance: ESOMEPRAZOLE
     Indication: Gastritis
  141. ESOMEPRAZOLE [Suspect]
     Active Substance: ESOMEPRAZOLE
  142. ESOMEPRAZOLE [Suspect]
     Active Substance: ESOMEPRAZOLE
  143. ESOMEPRAZOLE [Suspect]
     Active Substance: ESOMEPRAZOLE
  144. FELODIPINE [Suspect]
     Active Substance: FELODIPINE
     Indication: Hypertension
     Route: 048
  145. FELODIPINE [Suspect]
     Active Substance: FELODIPINE
     Route: 048
  146. FELODIPINE [Suspect]
     Active Substance: FELODIPINE
     Route: 048
  147. FELODIPINE [Suspect]
     Active Substance: FELODIPINE
     Route: 048
  148. FELODIPINE [Suspect]
     Active Substance: FELODIPINE
     Route: 048
  149. FELODIPINE [Suspect]
     Active Substance: FELODIPINE
     Route: 048
  150. FELODIPINE [Suspect]
     Active Substance: FELODIPINE
     Route: 048
  151. FELODIPINE [Suspect]
     Active Substance: FELODIPINE
     Route: 048
  152. FUROSEMIDE [Suspect]
     Active Substance: FUROSEMIDE
     Indication: Product used for unknown indication
  153. FUROSEMIDE [Suspect]
     Active Substance: FUROSEMIDE
  154. FUROSEMIDE [Suspect]
     Active Substance: FUROSEMIDE
  155. FUROSEMIDE [Suspect]
     Active Substance: FUROSEMIDE
  156. GABAPENTIN [Suspect]
     Active Substance: GABAPENTIN
     Indication: Product used for unknown indication
  157. GABAPENTIN [Suspect]
     Active Substance: GABAPENTIN
  158. GABAPENTIN [Suspect]
     Active Substance: GABAPENTIN
  159. GABAPENTIN [Suspect]
     Active Substance: GABAPENTIN
  160. GABAPENTIN [Suspect]
     Active Substance: GABAPENTIN
  161. GABAPENTIN [Suspect]
     Active Substance: GABAPENTIN
  162. HYDROCORTISONE [Suspect]
     Active Substance: HYDROCORTISONE
     Indication: Colitis ulcerative
     Route: 048
  163. HYDROCORTISONE [Suspect]
     Active Substance: HYDROCORTISONE
     Route: 048
  164. HYDROCORTISONE [Suspect]
     Active Substance: HYDROCORTISONE
  165. HYDROCORTISONE [Suspect]
     Active Substance: HYDROCORTISONE
  166. HYDROCORTISONE [Suspect]
     Active Substance: HYDROCORTISONE
     Route: 048
  167. HYDROCORTISONE [Suspect]
     Active Substance: HYDROCORTISONE
     Route: 048
  168. HYDROCORTISONE [Suspect]
     Active Substance: HYDROCORTISONE
     Route: 048
  169. HYDROCORTISONE [Suspect]
     Active Substance: HYDROCORTISONE
     Route: 048
  170. HYDROCORTISONE [Suspect]
     Active Substance: HYDROCORTISONE
     Route: 048
  171. HYDROCORTISONE [Suspect]
     Active Substance: HYDROCORTISONE
     Route: 048
  172. HYDROCORTISONE [Suspect]
     Active Substance: HYDROCORTISONE
     Route: 048
  173. HYDROCORTISONE [Suspect]
     Active Substance: HYDROCORTISONE
     Route: 048
  174. HYDROCORTISONE [Suspect]
     Active Substance: HYDROCORTISONE
     Route: 048
  175. HYDROCORTISONE [Suspect]
     Active Substance: HYDROCORTISONE
     Route: 048
  176. HYDROCORTISONE [Suspect]
     Active Substance: HYDROCORTISONE
  177. HYDROCORTISONE [Suspect]
     Active Substance: HYDROCORTISONE
  178. HYDROCORTISONE [Suspect]
     Active Substance: HYDROCORTISONE
  179. HYDROCORTISONE [Suspect]
     Active Substance: HYDROCORTISONE
  180. HYDROCORTISONE [Suspect]
     Active Substance: HYDROCORTISONE
     Route: 048
  181. HYDROCORTISONE [Suspect]
     Active Substance: HYDROCORTISONE
     Route: 048
  182. HYDROCORTISONE [Suspect]
     Active Substance: HYDROCORTISONE
     Route: 048
  183. HYDROCORTISONE ACETATE [Suspect]
     Active Substance: HYDROCORTISONE ACETATE
     Indication: Colitis ulcerative
     Route: 048
  184. HYDROCORTISONE ACETATE [Suspect]
     Active Substance: HYDROCORTISONE ACETATE
     Indication: Deep vein thrombosis
     Route: 048
  185. HYDROCORTISONE ACETATE [Suspect]
     Active Substance: HYDROCORTISONE ACETATE
     Route: 048
  186. HYDROCORTISONE ACETATE [Suspect]
     Active Substance: HYDROCORTISONE ACETATE
     Route: 048
  187. HYDROCORTISONE ACETATE [Suspect]
     Active Substance: HYDROCORTISONE ACETATE
     Route: 048
  188. HYDROCORTISONE ACETATE [Suspect]
     Active Substance: HYDROCORTISONE ACETATE
     Route: 048
  189. HYDROCORTISONE ACETATE [Suspect]
     Active Substance: HYDROCORTISONE ACETATE
  190. HYDROCORTISONE ACETATE [Suspect]
     Active Substance: HYDROCORTISONE ACETATE
  191. HYDROCORTISONE ACETATE [Suspect]
     Active Substance: HYDROCORTISONE ACETATE
  192. HYDROCORTISONE ACETATE [Suspect]
     Active Substance: HYDROCORTISONE ACETATE
  193. HYDROCORTISONE ACETATE [Suspect]
     Active Substance: HYDROCORTISONE ACETATE
  194. HYDROCORTISONE ACETATE [Suspect]
     Active Substance: HYDROCORTISONE ACETATE
  195. HYDROCORTISONE ACETATE [Suspect]
     Active Substance: HYDROCORTISONE ACETATE
     Route: 048
  196. HYDROCORTISONE ACETATE [Suspect]
     Active Substance: HYDROCORTISONE ACETATE
     Route: 048
  197. HYDROCORTISONE ACETATE [Suspect]
     Active Substance: HYDROCORTISONE ACETATE
     Route: 048
  198. HYDROCORTISONE ACETATE [Suspect]
     Active Substance: HYDROCORTISONE ACETATE
     Route: 048
  199. HYDROCORTISONE ACETATE [Suspect]
     Active Substance: HYDROCORTISONE ACETATE
  200. HYDROCORTISONE ACETATE [Suspect]
     Active Substance: HYDROCORTISONE ACETATE
  201. HYDROCORTISONE ACETATE [Suspect]
     Active Substance: HYDROCORTISONE ACETATE
     Route: 048
  202. HYDROCORTISONE ACETATE [Suspect]
     Active Substance: HYDROCORTISONE ACETATE
     Route: 048
  203. HYDROCORTISONE ACETATE [Suspect]
     Active Substance: HYDROCORTISONE ACETATE
     Route: 048
  204. HYDROCORTISONE ACETATE [Suspect]
     Active Substance: HYDROCORTISONE ACETATE
     Route: 048
  205. HYDROCORTISONE ACETATE [Suspect]
     Active Substance: HYDROCORTISONE ACETATE
     Route: 048
  206. HYDROCORTISONE ACETATE [Suspect]
     Active Substance: HYDROCORTISONE ACETATE
     Route: 048
  207. HYDROCORTISONE ACETATE [Suspect]
     Active Substance: HYDROCORTISONE ACETATE
     Route: 048
  208. HYDROCORTISONE ACETATE [Suspect]
     Active Substance: HYDROCORTISONE ACETATE
     Route: 048
  209. HYDROCORTISONE ACETATE [Suspect]
     Active Substance: HYDROCORTISONE ACETATE
     Route: 048
  210. INFLIXIMAB [Suspect]
     Active Substance: INFLIXIMAB
     Indication: Crohn^s disease
     Route: 042
  211. INFLIXIMAB [Suspect]
     Active Substance: INFLIXIMAB
     Indication: Colitis ulcerative
     Route: 042
  212. INFLIXIMAB [Suspect]
     Active Substance: INFLIXIMAB
     Route: 042
  213. INFLIXIMAB [Suspect]
     Active Substance: INFLIXIMAB
     Route: 042
  214. INFLIXIMAB [Suspect]
     Active Substance: INFLIXIMAB
  215. INFLIXIMAB [Suspect]
     Active Substance: INFLIXIMAB
  216. INFLIXIMAB [Suspect]
     Active Substance: INFLIXIMAB
  217. INFLIXIMAB [Suspect]
     Active Substance: INFLIXIMAB
  218. INFLIXIMAB [Suspect]
     Active Substance: INFLIXIMAB
  219. INFLIXIMAB [Suspect]
     Active Substance: INFLIXIMAB
  220. INFLIXIMAB [Suspect]
     Active Substance: INFLIXIMAB
     Route: 042
  221. INFLIXIMAB [Suspect]
     Active Substance: INFLIXIMAB
     Route: 042
  222. INFLIXIMAB [Suspect]
     Active Substance: INFLIXIMAB
     Route: 042
  223. INFLIXIMAB [Suspect]
     Active Substance: INFLIXIMAB
     Route: 042
  224. INFLIXIMAB [Suspect]
     Active Substance: INFLIXIMAB
     Dosage: 1 EVERY 2 WEEKS
  225. INFLIXIMAB [Suspect]
     Active Substance: INFLIXIMAB
     Dosage: 1 EVERY 2 WEEKS
  226. INFLIXIMAB [Suspect]
     Active Substance: INFLIXIMAB
     Route: 042
  227. INFLIXIMAB [Suspect]
     Active Substance: INFLIXIMAB
     Route: 042
  228. INFLIXIMAB [Suspect]
     Active Substance: INFLIXIMAB
     Route: 042
  229. INFLIXIMAB [Suspect]
     Active Substance: INFLIXIMAB
     Route: 042
  230. INFLIXIMAB [Suspect]
     Active Substance: INFLIXIMAB
     Route: 042
  231. INFLIXIMAB [Suspect]
     Active Substance: INFLIXIMAB
     Route: 042
  232. INFLIXIMAB [Suspect]
     Active Substance: INFLIXIMAB
     Route: 042
  233. INFLIXIMAB [Suspect]
     Active Substance: INFLIXIMAB
     Route: 042
  234. INFLIXIMAB [Suspect]
     Active Substance: INFLIXIMAB
     Route: 042
  235. INFLIXIMAB [Suspect]
     Active Substance: INFLIXIMAB
  236. INFLIXIMAB [Suspect]
     Active Substance: INFLIXIMAB
  237. INFLIXIMAB [Suspect]
     Active Substance: INFLIXIMAB
     Route: 042
  238. INFLIXIMAB [Suspect]
     Active Substance: INFLIXIMAB
     Route: 042
  239. INFLIXIMAB [Suspect]
     Active Substance: INFLIXIMAB
     Route: 042
  240. INFLIXIMAB [Suspect]
     Active Substance: INFLIXIMAB
     Route: 042
  241. INFLIXIMAB [Suspect]
     Active Substance: INFLIXIMAB
     Dosage: 1 EVERY 2 WEEKS
     Route: 042
  242. INFLIXIMAB [Suspect]
     Active Substance: INFLIXIMAB
     Dosage: 1 EVERY 2 WEEKS
     Route: 042
  243. INFLIXIMAB [Suspect]
     Active Substance: INFLIXIMAB
     Dosage: 1 EVERY 2 WEEKS
     Route: 042
  244. INFLIXIMAB [Suspect]
     Active Substance: INFLIXIMAB
     Dosage: 1 EVERY 2 WEEKS
     Route: 042
  245. INFLIXIMAB [Suspect]
     Active Substance: INFLIXIMAB
  246. INFLIXIMAB [Suspect]
     Active Substance: INFLIXIMAB
  247. INFLIXIMAB [Suspect]
     Active Substance: INFLIXIMAB
     Route: 042
  248. INFLIXIMAB [Suspect]
     Active Substance: INFLIXIMAB
     Route: 042
  249. INFLIXIMAB [Suspect]
     Active Substance: INFLIXIMAB
  250. INFLIXIMAB [Suspect]
     Active Substance: INFLIXIMAB
  251. INFLIXIMAB [Suspect]
     Active Substance: INFLIXIMAB
  252. INFLIXIMAB [Suspect]
     Active Substance: INFLIXIMAB
  253. INFLIXIMAB [Suspect]
     Active Substance: INFLIXIMAB
  254. INFLIXIMAB [Suspect]
     Active Substance: INFLIXIMAB
  255. INFLIXIMAB [Suspect]
     Active Substance: INFLIXIMAB
  256. INFLIXIMAB [Suspect]
     Active Substance: INFLIXIMAB
  257. INFLIXIMAB [Suspect]
     Active Substance: INFLIXIMAB
  258. INFLIXIMAB [Suspect]
     Active Substance: INFLIXIMAB
  259. INFLIXIMAB [Suspect]
     Active Substance: INFLIXIMAB
  260. INFLIXIMAB [Suspect]
     Active Substance: INFLIXIMAB
     Indication: Crohn^s disease
  261. INFLIXIMAB [Suspect]
     Active Substance: INFLIXIMAB
     Indication: Colitis ulcerative
  262. INFLIXIMAB [Suspect]
     Active Substance: INFLIXIMAB
  263. INFLIXIMAB [Suspect]
     Active Substance: INFLIXIMAB
  264. INFLIXIMAB [Suspect]
     Active Substance: INFLIXIMAB
  265. LEVOTHYROXINE SODIUM [Suspect]
     Active Substance: LEVOTHYROXINE SODIUM
     Indication: Product used for unknown indication
  266. LEVOTHYROXINE SODIUM [Suspect]
     Active Substance: LEVOTHYROXINE SODIUM
  267. LEVOTHYROXINE SODIUM [Suspect]
     Active Substance: LEVOTHYROXINE SODIUM
  268. LISDEXAMFETAMINE DIMESYLATE [Suspect]
     Active Substance: LISDEXAMFETAMINE DIMESYLATE
     Indication: Attention deficit hyperactivity disorder
     Route: 048
  269. LISDEXAMFETAMINE DIMESYLATE [Suspect]
     Active Substance: LISDEXAMFETAMINE DIMESYLATE
     Route: 048
  270. LISDEXAMFETAMINE DIMESYLATE [Suspect]
     Active Substance: LISDEXAMFETAMINE DIMESYLATE
     Route: 048
  271. LISDEXAMFETAMINE DIMESYLATE [Suspect]
     Active Substance: LISDEXAMFETAMINE DIMESYLATE
     Route: 048
  272. LISDEXAMFETAMINE DIMESYLATE [Suspect]
     Active Substance: LISDEXAMFETAMINE DIMESYLATE
  273. LISDEXAMFETAMINE DIMESYLATE [Suspect]
     Active Substance: LISDEXAMFETAMINE DIMESYLATE
  274. LISDEXAMFETAMINE DIMESYLATE [Suspect]
     Active Substance: LISDEXAMFETAMINE DIMESYLATE
  275. LISDEXAMFETAMINE DIMESYLATE [Suspect]
     Active Substance: LISDEXAMFETAMINE DIMESYLATE
  276. MEBEVERINE HYDROCHLORIDE [Suspect]
     Active Substance: MEBEVERINE HYDROCHLORIDE
     Indication: Product used for unknown indication
  277. MEBEVERINE HYDROCHLORIDE [Suspect]
     Active Substance: MEBEVERINE HYDROCHLORIDE
  278. MEBEVERINE HYDROCHLORIDE [Suspect]
     Active Substance: MEBEVERINE HYDROCHLORIDE
  279. MEBEVERINE HYDROCHLORIDE [Suspect]
     Active Substance: MEBEVERINE HYDROCHLORIDE
  280. MEBEVERINE HYDROCHLORIDE [Suspect]
     Active Substance: MEBEVERINE HYDROCHLORIDE
  281. MEBEVERINE HYDROCHLORIDE [Suspect]
     Active Substance: MEBEVERINE HYDROCHLORIDE
  282. MESALAMINE [Suspect]
     Active Substance: MESALAMINE
     Indication: Colitis ulcerative
  283. MESALAMINE [Suspect]
     Active Substance: MESALAMINE
  284. MESALAMINE [Suspect]
     Active Substance: MESALAMINE
  285. MESALAMINE [Suspect]
     Active Substance: MESALAMINE
  286. MESALAMINE [Suspect]
     Active Substance: MESALAMINE
  287. MESALAMINE [Suspect]
     Active Substance: MESALAMINE
  288. MESALAMINE [Suspect]
     Active Substance: MESALAMINE
  289. MESALAMINE [Suspect]
     Active Substance: MESALAMINE
  290. MESALAMINE [Suspect]
     Active Substance: MESALAMINE
  291. MESALAMINE [Suspect]
     Active Substance: MESALAMINE
  292. MESALAMINE [Suspect]
     Active Substance: MESALAMINE
  293. MESALAMINE [Suspect]
     Active Substance: MESALAMINE
  294. MESALAMINE [Suspect]
     Active Substance: MESALAMINE
  295. MESALAMINE [Suspect]
     Active Substance: MESALAMINE
  296. MESALAMINE [Suspect]
     Active Substance: MESALAMINE
  297. MESALAMINE [Suspect]
     Active Substance: MESALAMINE
  298. MESALAMINE [Suspect]
     Active Substance: MESALAMINE
  299. MESALAMINE [Suspect]
     Active Substance: MESALAMINE
  300. MESALAMINE [Suspect]
     Active Substance: MESALAMINE
  301. MESALAMINE [Suspect]
     Active Substance: MESALAMINE
  302. MESALAMINE [Suspect]
     Active Substance: MESALAMINE
  303. MESALAMINE [Suspect]
     Active Substance: MESALAMINE
  304. MESALAMINE [Suspect]
     Active Substance: MESALAMINE
  305. MESALAMINE [Suspect]
     Active Substance: MESALAMINE
  306. MESALAMINE [Suspect]
     Active Substance: MESALAMINE
  307. MESALAMINE [Suspect]
     Active Substance: MESALAMINE
  308. MESALAMINE [Suspect]
     Active Substance: MESALAMINE
  309. MESALAMINE [Suspect]
     Active Substance: MESALAMINE
  310. MESALAMINE [Suspect]
     Active Substance: MESALAMINE
  311. MESALAMINE [Suspect]
     Active Substance: MESALAMINE
  312. MESALAMINE [Suspect]
     Active Substance: MESALAMINE
  313. MESALAMINE [Suspect]
     Active Substance: MESALAMINE
  314. MESALAMINE [Suspect]
     Active Substance: MESALAMINE
  315. MESALAMINE [Suspect]
     Active Substance: MESALAMINE
  316. MESALAMINE [Suspect]
     Active Substance: MESALAMINE
  317. MESALAMINE [Suspect]
     Active Substance: MESALAMINE
  318. MESALAMINE [Suspect]
     Active Substance: MESALAMINE
  319. MESALAMINE [Suspect]
     Active Substance: MESALAMINE
  320. MESALAMINE [Suspect]
     Active Substance: MESALAMINE
  321. MESALAMINE [Suspect]
     Active Substance: MESALAMINE
  322. MESALAMINE [Suspect]
     Active Substance: MESALAMINE
  323. MESALAMINE [Suspect]
     Active Substance: MESALAMINE
  324. MESALAMINE [Suspect]
     Active Substance: MESALAMINE
  325. MESALAMINE [Suspect]
     Active Substance: MESALAMINE
  326. MESALAMINE [Suspect]
     Active Substance: MESALAMINE
  327. MESALAMINE [Suspect]
     Active Substance: MESALAMINE
  328. MESALAMINE [Suspect]
     Active Substance: MESALAMINE
  329. MESALAMINE [Suspect]
     Active Substance: MESALAMINE
  330. MESALAMINE [Suspect]
     Active Substance: MESALAMINE
     Route: 048
  331. MESALAMINE [Suspect]
     Active Substance: MESALAMINE
     Route: 048
  332. MESALAMINE [Suspect]
     Active Substance: MESALAMINE
     Indication: Colitis ulcerative
     Route: 048
  333. MESALAMINE [Suspect]
     Active Substance: MESALAMINE
     Route: 048
  334. MESALAMINE [Suspect]
     Active Substance: MESALAMINE
     Route: 048
  335. MESALAMINE [Suspect]
     Active Substance: MESALAMINE
     Route: 048
  336. MESALAMINE [Suspect]
     Active Substance: MESALAMINE
     Route: 048
  337. MESALAMINE [Suspect]
     Active Substance: MESALAMINE
     Route: 048
  338. MESALAMINE [Suspect]
     Active Substance: MESALAMINE
     Route: 048
  339. MESALAMINE [Suspect]
     Active Substance: MESALAMINE
     Route: 048
  340. MESALAMINE [Suspect]
     Active Substance: MESALAMINE
     Route: 048
  341. MESALAMINE [Suspect]
     Active Substance: MESALAMINE
  342. MESALAMINE [Suspect]
     Active Substance: MESALAMINE
  343. MESALAMINE [Suspect]
     Active Substance: MESALAMINE
  344. MESALAMINE [Suspect]
     Active Substance: MESALAMINE
  345. MESALAMINE [Suspect]
     Active Substance: MESALAMINE
  346. MESALAMINE [Suspect]
     Active Substance: MESALAMINE
  347. MESALAMINE [Suspect]
     Active Substance: MESALAMINE
  348. MESALAMINE [Suspect]
     Active Substance: MESALAMINE
  349. MESALAMINE [Suspect]
     Active Substance: MESALAMINE
  350. MESALAMINE [Suspect]
     Active Substance: MESALAMINE
  351. MESALAMINE [Suspect]
     Active Substance: MESALAMINE
  352. MESALAMINE [Suspect]
     Active Substance: MESALAMINE
  353. MESALAMINE [Suspect]
     Active Substance: MESALAMINE
  354. MESALAMINE [Suspect]
     Active Substance: MESALAMINE
  355. MESALAMINE [Suspect]
     Active Substance: MESALAMINE
  356. MESALAMINE [Suspect]
     Active Substance: MESALAMINE
  357. MESALAMINE [Suspect]
     Active Substance: MESALAMINE
  358. MESALAMINE [Suspect]
     Active Substance: MESALAMINE
  359. MESALAMINE [Suspect]
     Active Substance: MESALAMINE
  360. MESALAMINE [Suspect]
     Active Substance: MESALAMINE
  361. MESALAMINE [Suspect]
     Active Substance: MESALAMINE
  362. MESALAMINE [Suspect]
     Active Substance: MESALAMINE
  363. MESALAMINE [Suspect]
     Active Substance: MESALAMINE
  364. MESALAMINE [Suspect]
     Active Substance: MESALAMINE
  365. MESALAMINE [Suspect]
     Active Substance: MESALAMINE
  366. MESALAMINE [Suspect]
     Active Substance: MESALAMINE
  367. MESALAMINE [Suspect]
     Active Substance: MESALAMINE
  368. MESALAMINE [Suspect]
     Active Substance: MESALAMINE
  369. MESALAMINE [Suspect]
     Active Substance: MESALAMINE
  370. MESALAMINE [Suspect]
     Active Substance: MESALAMINE
  371. MESALAMINE [Suspect]
     Active Substance: MESALAMINE
  372. MESALAMINE [Suspect]
     Active Substance: MESALAMINE
  373. MESALAMINE [Suspect]
     Active Substance: MESALAMINE
  374. MESALAMINE [Suspect]
     Active Substance: MESALAMINE
  375. MESALAMINE [Suspect]
     Active Substance: MESALAMINE
  376. MESALAMINE [Suspect]
     Active Substance: MESALAMINE
     Route: 048
  377. MESALAMINE [Suspect]
     Active Substance: MESALAMINE
     Route: 048
  378. MESALAMINE [Suspect]
     Active Substance: MESALAMINE
     Route: 048
  379. MESALAMINE [Suspect]
     Active Substance: MESALAMINE
  380. MESALAMINE [Suspect]
     Active Substance: MESALAMINE
  381. MESALAMINE [Suspect]
     Active Substance: MESALAMINE
  382. MESALAMINE [Suspect]
     Active Substance: MESALAMINE
     Indication: Colitis ulcerative
  383. MESALAMINE [Suspect]
     Active Substance: MESALAMINE
  384. MESALAMINE [Suspect]
     Active Substance: MESALAMINE
     Route: 048
  385. MESALAMINE [Suspect]
     Active Substance: MESALAMINE
  386. MESALAMINE [Suspect]
     Active Substance: MESALAMINE
  387. MESALAMINE [Suspect]
     Active Substance: MESALAMINE
  388. MESALAMINE [Suspect]
     Active Substance: MESALAMINE
  389. MESALAMINE [Suspect]
     Active Substance: MESALAMINE
  390. MESALAMINE [Suspect]
     Active Substance: MESALAMINE
  391. MESALAMINE [Suspect]
     Active Substance: MESALAMINE
     Route: 048
  392. MESALAMINE [Suspect]
     Active Substance: MESALAMINE
     Route: 048
  393. MESALAMINE [Suspect]
     Active Substance: MESALAMINE
     Route: 048
  394. MESALAMINE [Suspect]
     Active Substance: MESALAMINE
     Route: 048
  395. MESALAMINE [Suspect]
     Active Substance: MESALAMINE
  396. MESALAMINE [Suspect]
     Active Substance: MESALAMINE
  397. MESALAMINE [Suspect]
     Active Substance: MESALAMINE
     Route: 048
  398. MESALAMINE [Suspect]
     Active Substance: MESALAMINE
     Route: 048
  399. MESALAMINE [Suspect]
     Active Substance: MESALAMINE
     Route: 048
  400. MESALAMINE [Suspect]
     Active Substance: MESALAMINE
     Route: 048
  401. MESALAMINE [Suspect]
     Active Substance: MESALAMINE
     Indication: Product used for unknown indication
     Route: 048
  402. METFORMIN HYDROCHLORIDE [Suspect]
     Active Substance: METFORMIN HYDROCHLORIDE
     Indication: Product used for unknown indication
  403. METFORMIN HYDROCHLORIDE [Suspect]
     Active Substance: METFORMIN HYDROCHLORIDE
  404. METFORMIN HYDROCHLORIDE [Suspect]
     Active Substance: METFORMIN HYDROCHLORIDE
  405. METFORMIN HYDROCHLORIDE [Suspect]
     Active Substance: METFORMIN HYDROCHLORIDE
  406. OMEPRAZOLE [Suspect]
     Active Substance: OMEPRAZOLE
     Indication: Gastritis
  407. OMEPRAZOLE [Suspect]
     Active Substance: OMEPRAZOLE
  408. OMEPRAZOLE [Suspect]
     Active Substance: OMEPRAZOLE
  409. OMEPRAZOLE [Suspect]
     Active Substance: OMEPRAZOLE
  410. OMEPRAZOLE [Suspect]
     Active Substance: OMEPRAZOLE
  411. OMEPRAZOLE [Suspect]
     Active Substance: OMEPRAZOLE
  412. OXYCODONE HYDROCHLORIDE [Suspect]
     Active Substance: OXYCODONE HYDROCHLORIDE
     Indication: Product used for unknown indication
  413. OXYCODONE HYDROCHLORIDE [Suspect]
     Active Substance: OXYCODONE HYDROCHLORIDE
  414. OXYCODONE HYDROCHLORIDE [Suspect]
     Active Substance: OXYCODONE HYDROCHLORIDE
  415. OXYCODONE HYDROCHLORIDE [Suspect]
     Active Substance: OXYCODONE HYDROCHLORIDE
  416. OXYCODONE HYDROCHLORIDE [Suspect]
     Active Substance: OXYCODONE HYDROCHLORIDE
  417. OXYCODONE HYDROCHLORIDE [Suspect]
     Active Substance: OXYCODONE HYDROCHLORIDE
  418. OXYCODONE HYDROCHLORIDE [Suspect]
     Active Substance: OXYCODONE HYDROCHLORIDE
  419. OXYCODONE HYDROCHLORIDE [Suspect]
     Active Substance: OXYCODONE HYDROCHLORIDE
     Indication: Product used for unknown indication
  420. PARA-AMINOSALICYLIC ACID [Suspect]
     Active Substance: AMINOSALICYLIC ACID
     Indication: Product used for unknown indication
     Route: 048
  421. PARA-AMINOSALICYLIC ACID [Suspect]
     Active Substance: AMINOSALICYLIC ACID
     Route: 048
  422. PARA-AMINOSALICYLIC ACID [Suspect]
     Active Substance: AMINOSALICYLIC ACID
     Route: 048
  423. PARA-AMINOSALICYLIC ACID [Suspect]
     Active Substance: AMINOSALICYLIC ACID
     Route: 048
  424. PREDNISONE [Suspect]
     Active Substance: PREDNISONE
     Indication: Colitis ulcerative
  425. PREDNISONE [Suspect]
     Active Substance: PREDNISONE
  426. PREDNISONE [Suspect]
     Active Substance: PREDNISONE
  427. PREDNISONE [Suspect]
     Active Substance: PREDNISONE
  428. PREDNISONE [Suspect]
     Active Substance: PREDNISONE
  429. PREDNISONE [Suspect]
     Active Substance: PREDNISONE
  430. PREDNISONE [Suspect]
     Active Substance: PREDNISONE
  431. PREDNISONE [Suspect]
     Active Substance: PREDNISONE
  432. PREDNISONE [Suspect]
     Active Substance: PREDNISONE
  433. PREDNISONE [Suspect]
     Active Substance: PREDNISONE
  434. ROSUVASTATIN CALCIUM [Suspect]
     Active Substance: ROSUVASTATIN CALCIUM
     Indication: Ill-defined disorder
  435. ROSUVASTATIN CALCIUM [Suspect]
     Active Substance: ROSUVASTATIN CALCIUM
     Indication: Blood cholesterol increased
  436. ROSUVASTATIN CALCIUM [Suspect]
     Active Substance: ROSUVASTATIN CALCIUM
  437. ROSUVASTATIN CALCIUM [Suspect]
     Active Substance: ROSUVASTATIN CALCIUM
  438. ROSUVASTATIN CALCIUM [Suspect]
     Active Substance: ROSUVASTATIN CALCIUM
  439. ROSUVASTATIN CALCIUM [Suspect]
     Active Substance: ROSUVASTATIN CALCIUM
  440. ROSUVASTATIN CALCIUM [Suspect]
     Active Substance: ROSUVASTATIN CALCIUM
  441. ROSUVASTATIN CALCIUM [Suspect]
     Active Substance: ROSUVASTATIN CALCIUM
  442. ROSUVASTATIN CALCIUM [Suspect]
     Active Substance: ROSUVASTATIN CALCIUM
  443. ROSUVASTATIN CALCIUM [Suspect]
     Active Substance: ROSUVASTATIN CALCIUM
  444. SULFASALAZINE [Suspect]
     Active Substance: SULFASALAZINE
     Indication: Colitis ulcerative
  445. SULFASALAZINE [Suspect]
     Active Substance: SULFASALAZINE
  446. SULFASALAZINE [Suspect]
     Active Substance: SULFASALAZINE
  447. SULFASALAZINE [Suspect]
     Active Substance: SULFASALAZINE
  448. SULFASALAZINE [Suspect]
     Active Substance: SULFASALAZINE
  449. SULFASALAZINE [Suspect]
     Active Substance: SULFASALAZINE
  450. SULFASALAZINE [Suspect]
     Active Substance: SULFASALAZINE
  451. SULFASALAZINE [Suspect]
     Active Substance: SULFASALAZINE
  452. SULFASALAZINE [Suspect]
     Active Substance: SULFASALAZINE
  453. SULFASALAZINE [Suspect]
     Active Substance: SULFASALAZINE
  454. SULFASALAZINE [Suspect]
     Active Substance: SULFASALAZINE
     Route: 048
  455. SULFASALAZINE [Suspect]
     Active Substance: SULFASALAZINE
     Route: 048
  456. SULFASALAZINE [Suspect]
     Active Substance: SULFASALAZINE
     Route: 048
  457. SULFASALAZINE [Suspect]
     Active Substance: SULFASALAZINE
     Route: 048
  458. SULFASALAZINE [Suspect]
     Active Substance: SULFASALAZINE
  459. SULFASALAZINE [Suspect]
     Active Substance: SULFASALAZINE
  460. SULFASALAZINE [Suspect]
     Active Substance: SULFASALAZINE
  461. SULFASALAZINE [Suspect]
     Active Substance: SULFASALAZINE
     Route: 048
  462. SULFASALAZINE [Suspect]
     Active Substance: SULFASALAZINE
     Route: 048
  463. SULFASALAZINE [Suspect]
     Active Substance: SULFASALAZINE
     Route: 048
  464. SULFASALAZINE [Suspect]
     Active Substance: SULFASALAZINE
     Route: 048
  465. SULFASALAZINE [Suspect]
     Active Substance: SULFASALAZINE
  466. SULFASALAZINE [Suspect]
     Active Substance: SULFASALAZINE
  467. SULFASALAZINE [Suspect]
     Active Substance: SULFASALAZINE
  468. SULFASALAZINE [Suspect]
     Active Substance: SULFASALAZINE
  469. SULFASALAZINE [Suspect]
     Active Substance: SULFASALAZINE
  470. SULFASALAZINE [Suspect]
     Active Substance: SULFASALAZINE
  471. SULFASALAZINE [Suspect]
     Active Substance: SULFASALAZINE
  472. TOZINAMERAN [Suspect]
     Active Substance: TOZINAMERAN
     Indication: Product used for unknown indication
  473. TOZINAMERAN [Suspect]
     Active Substance: TOZINAMERAN
     Route: 048
  474. TOZINAMERAN [Suspect]
     Active Substance: TOZINAMERAN
     Route: 048
  475. TOZINAMERAN [Suspect]
     Active Substance: TOZINAMERAN
     Route: 048
  476. TOZINAMERAN [Suspect]
     Active Substance: TOZINAMERAN
     Route: 048
  477. VEDOLIZUMAB [Suspect]
     Active Substance: VEDOLIZUMAB
     Indication: Deep vein thrombosis
     Route: 048
  478. VEDOLIZUMAB [Suspect]
     Active Substance: VEDOLIZUMAB
     Indication: Colitis ulcerative
     Route: 048
  479. VEDOLIZUMAB [Suspect]
     Active Substance: VEDOLIZUMAB
     Route: 048
  480. VEDOLIZUMAB [Suspect]
     Active Substance: VEDOLIZUMAB
     Route: 048
  481. VEDOLIZUMAB [Suspect]
     Active Substance: VEDOLIZUMAB
     Route: 048
  482. VEDOLIZUMAB [Suspect]
     Active Substance: VEDOLIZUMAB
     Route: 048
  483. VEDOLIZUMAB [Suspect]
     Active Substance: VEDOLIZUMAB
     Route: 048
  484. VEDOLIZUMAB [Suspect]
     Active Substance: VEDOLIZUMAB
     Route: 048
  485. VEDOLIZUMAB [Suspect]
     Active Substance: VEDOLIZUMAB
     Route: 042
  486. VEDOLIZUMAB [Suspect]
     Active Substance: VEDOLIZUMAB
     Route: 042
  487. VEDOLIZUMAB [Suspect]
     Active Substance: VEDOLIZUMAB
     Route: 048
  488. VEDOLIZUMAB [Suspect]
     Active Substance: VEDOLIZUMAB
     Route: 048
  489. VEDOLIZUMAB [Suspect]
     Active Substance: VEDOLIZUMAB
     Route: 048
  490. VEDOLIZUMAB [Suspect]
     Active Substance: VEDOLIZUMAB
     Route: 048
  491. VEDOLIZUMAB [Suspect]
     Active Substance: VEDOLIZUMAB
     Route: 042
  492. VEDOLIZUMAB [Suspect]
     Active Substance: VEDOLIZUMAB
     Route: 042
  493. VEDOLIZUMAB [Suspect]
     Active Substance: VEDOLIZUMAB
     Route: 042
  494. VEDOLIZUMAB [Suspect]
     Active Substance: VEDOLIZUMAB
     Route: 042
  495. VEDOLIZUMAB [Suspect]
     Active Substance: VEDOLIZUMAB
  496. VEDOLIZUMAB [Suspect]
     Active Substance: VEDOLIZUMAB
  497. VEDOLIZUMAB [Suspect]
     Active Substance: VEDOLIZUMAB
  498. VEDOLIZUMAB [Suspect]
     Active Substance: VEDOLIZUMAB
  499. VEDOLIZUMAB [Suspect]
     Active Substance: VEDOLIZUMAB
  500. VEDOLIZUMAB [Suspect]
     Active Substance: VEDOLIZUMAB
  501. VEDOLIZUMAB [Suspect]
     Active Substance: VEDOLIZUMAB
     Route: 048
  502. VEDOLIZUMAB [Suspect]
     Active Substance: VEDOLIZUMAB
     Route: 048
  503. VEDOLIZUMAB [Suspect]
     Active Substance: VEDOLIZUMAB
     Route: 048
  504. VEDOLIZUMAB [Suspect]
     Active Substance: VEDOLIZUMAB
     Route: 048
  505. VEDOLIZUMAB [Suspect]
     Active Substance: VEDOLIZUMAB
  506. VEDOLIZUMAB [Suspect]
     Active Substance: VEDOLIZUMAB
  507. VITAMIN D3 [Suspect]
     Active Substance: CHOLECALCIFEROL
     Indication: Product used for unknown indication
     Route: 048
  508. VITAMIN D3 [Suspect]
     Active Substance: CHOLECALCIFEROL
     Route: 048
  509. VITAMIN D3 [Suspect]
     Active Substance: CHOLECALCIFEROL
     Route: 048
  510. VITAMIN D3 [Suspect]
     Active Substance: CHOLECALCIFEROL
     Route: 048
  511. VITAMIN D3 [Suspect]
     Active Substance: CHOLECALCIFEROL
  512. VITAMIN D3 [Suspect]
     Active Substance: CHOLECALCIFEROL
  513. VITAMIN D3 [Suspect]
     Active Substance: CHOLECALCIFEROL
  514. VITAMIN D3 [Suspect]
     Active Substance: CHOLECALCIFEROL
  515. WARFARIN [Suspect]
     Active Substance: WARFARIN
     Indication: Deep vein thrombosis
  516. WARFARIN SODIUM [Suspect]
     Active Substance: WARFARIN SODIUM
     Indication: Deep vein thrombosis
  517. WARFARIN SODIUM [Suspect]
     Active Substance: WARFARIN SODIUM
     Indication: Colitis ulcerative
  518. WARFARIN SODIUM [Suspect]
     Active Substance: WARFARIN SODIUM
  519. WARFARIN SODIUM [Suspect]
     Active Substance: WARFARIN SODIUM
  520. WARFARIN SODIUM [Suspect]
     Active Substance: WARFARIN SODIUM
  521. WARFARIN SODIUM [Suspect]
     Active Substance: WARFARIN SODIUM
     Route: 048
  522. WARFARIN SODIUM [Suspect]
     Active Substance: WARFARIN SODIUM
     Route: 048
  523. WARFARIN SODIUM [Suspect]
     Active Substance: WARFARIN SODIUM
     Route: 048
  524. WARFARIN SODIUM [Suspect]
     Active Substance: WARFARIN SODIUM
     Route: 048
  525. WARFARIN SODIUM [Suspect]
     Active Substance: WARFARIN SODIUM
     Route: 048
  526. WARFARIN SODIUM [Suspect]
     Active Substance: WARFARIN SODIUM
     Route: 048
  527. WARFARIN SODIUM [Suspect]
     Active Substance: WARFARIN SODIUM
     Route: 048
  528. WARFARIN SODIUM [Suspect]
     Active Substance: WARFARIN SODIUM
     Route: 048
  529. WARFARIN SODIUM [Suspect]
     Active Substance: WARFARIN SODIUM
     Route: 048
  530. WARFARIN SODIUM [Suspect]
     Active Substance: WARFARIN SODIUM
     Route: 048
  531. ACETAMINOPHEN [Concomitant]
     Active Substance: ACETAMINOPHEN
     Indication: Ill-defined disorder
  532. ACETAMINOPHEN [Concomitant]
     Active Substance: ACETAMINOPHEN
  533. ACETAMINOPHEN [Concomitant]
     Active Substance: ACETAMINOPHEN
  534. ACETAMINOPHEN [Concomitant]
     Active Substance: ACETAMINOPHEN
  535. ALGINIC ACID;ALUMINIUM HYDROXIDE;MAGNESIUM TRISILICATE;SODIUM ALGINATE [Concomitant]
     Indication: Ill-defined disorder
  536. ALGINIC ACID;ALUMINIUM HYDROXIDE;MAGNESIUM TRISILICATE;SODIUM ALGINATE [Concomitant]
  537. ALGINIC ACID;ALUMINIUM HYDROXIDE;MAGNESIUM TRISILICATE;SODIUM ALGINATE [Concomitant]
  538. ALGINIC ACID;ALUMINIUM HYDROXIDE;MAGNESIUM TRISILICATE;SODIUM ALGINATE [Concomitant]
  539. AMLODIPINE [Concomitant]
     Active Substance: AMLODIPINE BESYLATE
     Indication: Product used for unknown indication
  540. AMLODIPINE [Concomitant]
     Active Substance: AMLODIPINE BESYLATE
  541. AMLODIPINE BESYLATE [Concomitant]
     Active Substance: AMLODIPINE BESYLATE
     Indication: Product used for unknown indication
  542. AMLODIPINE BESYLATE [Concomitant]
     Active Substance: AMLODIPINE BESYLATE
  543. ATORVASTATIN [Concomitant]
     Active Substance: ATORVASTATIN
     Indication: Product used for unknown indication
  544. ATORVASTATIN [Concomitant]
     Active Substance: ATORVASTATIN
  545. ATORVASTATIN CALCIUM [Concomitant]
     Active Substance: ATORVASTATIN CALCIUM
     Indication: Product used for unknown indication
  546. ATORVASTATIN CALCIUM [Concomitant]
     Active Substance: ATORVASTATIN CALCIUM
  547. BETAMETHASONE VALERATE [Concomitant]
     Active Substance: BETAMETHASONE VALERATE
     Indication: Product used for unknown indication
  548. BETAMETHASONE VALERATE [Concomitant]
     Active Substance: BETAMETHASONE VALERATE
  549. BISOPROLOL [Concomitant]
     Active Substance: BISOPROLOL
     Indication: Product used for unknown indication
  550. BISOPROLOL [Concomitant]
     Active Substance: BISOPROLOL
  551. CALCIUM CARBONATE;MAGNESIUM CARBONATE [Concomitant]
     Indication: Product used for unknown indication
  552. CALCIUM CARBONATE;MAGNESIUM CARBONATE [Concomitant]
  553. CALCIUM CARBONATE;SODIUM ALGINATE [Concomitant]
     Indication: Product used for unknown indication
  554. CALCIUM CARBONATE;SODIUM ALGINATE [Concomitant]
  555. CALCIUM CARBONATE;SODIUM ALGINATE;SODIUM BICARBONATE [Concomitant]
     Indication: Product used for unknown indication
  556. CALCIUM CARBONATE;SODIUM ALGINATE;SODIUM BICARBONATE [Concomitant]
  557. CALCIUM CARBONATE;SODIUM ALGINATE;SODIUM BICARBONATE [Concomitant]
  558. CALCIUM CARBONATE;SODIUM ALGINATE;SODIUM BICARBONATE [Concomitant]
  559. CALCIUM CARBONATE\CHOLECALCIFEROL [Concomitant]
     Active Substance: CALCIUM CARBONATE\CHOLECALCIFEROL
     Indication: Product used for unknown indication
  560. CALCIUM CARBONATE\CHOLECALCIFEROL [Concomitant]
     Active Substance: CALCIUM CARBONATE\CHOLECALCIFEROL
  561. CALCIUM CARBONATE\CHOLECALCIFEROL [Concomitant]
     Active Substance: CALCIUM CARBONATE\CHOLECALCIFEROL
  562. CALCIUM CARBONATE\CHOLECALCIFEROL [Concomitant]
     Active Substance: CALCIUM CARBONATE\CHOLECALCIFEROL
  563. CALCIUM CARBONATE\CHOLECALCIFEROL [Concomitant]
     Active Substance: CALCIUM CARBONATE\CHOLECALCIFEROL
  564. CALCIUM CARBONATE\CHOLECALCIFEROL [Concomitant]
     Active Substance: CALCIUM CARBONATE\CHOLECALCIFEROL
  565. CITALOPRAM [Concomitant]
     Active Substance: CITALOPRAM
     Indication: Product used for unknown indication
  566. CITALOPRAM [Concomitant]
     Active Substance: CITALOPRAM
  567. CLOBETASONE BUTYRATE [Concomitant]
     Active Substance: CLOBETASONE BUTYRATE
     Indication: Product used for unknown indication
  568. CLOBETASONE BUTYRATE [Concomitant]
     Active Substance: CLOBETASONE BUTYRATE
  569. DORZOLAMIDE HYDROCHLORIDE [Concomitant]
     Active Substance: DORZOLAMIDE HYDROCHLORIDE
     Indication: Product used for unknown indication
  570. DORZOLAMIDE HYDROCHLORIDE [Concomitant]
     Active Substance: DORZOLAMIDE HYDROCHLORIDE
  571. EMPAGLIFLOZIN [Concomitant]
     Active Substance: EMPAGLIFLOZIN
     Indication: Product used for unknown indication
  572. EMPAGLIFLOZIN [Concomitant]
     Active Substance: EMPAGLIFLOZIN
  573. FESOTERODINE FUMARATE [Concomitant]
     Active Substance: FESOTERODINE FUMARATE
     Indication: Product used for unknown indication
  574. FESOTERODINE FUMARATE [Concomitant]
     Active Substance: FESOTERODINE FUMARATE
  575. FOLIC ACID [Concomitant]
     Active Substance: FOLIC ACID
     Indication: Product used for unknown indication
  576. FOLIC ACID [Concomitant]
     Active Substance: FOLIC ACID
  577. LANSOPRAZOLE [Concomitant]
     Active Substance: LANSOPRAZOLE
     Indication: Product used for unknown indication
  578. LATANOPROST [Concomitant]
     Active Substance: LATANOPROST
     Indication: Product used for unknown indication
  579. LATANOPROST [Concomitant]
     Active Substance: LATANOPROST
  580. LATANOPROST [Concomitant]
     Active Substance: LATANOPROST
  581. LATANOPROST [Concomitant]
     Active Substance: LATANOPROST
  582. POLYETHYLENE GLYCOL 3350\POTASSIUM CHLORIDE\SODIUM BICARBONATE\SODIUM [Concomitant]
     Active Substance: POLYETHYLENE GLYCOL 3350\POTASSIUM CHLORIDE\SODIUM BICARBONATE\SODIUM CHLORIDE
     Indication: Product used for unknown indication
     Route: 065
  583. POLYETHYLENE GLYCOL 3350\POTASSIUM CHLORIDE\SODIUM BICARBONATE\SODIUM [Concomitant]
     Active Substance: POLYETHYLENE GLYCOL 3350\POTASSIUM CHLORIDE\SODIUM BICARBONATE\SODIUM CHLORIDE
  584. POLYETHYLENE GLYCOL 3350\POTASSIUM CHLORIDE\SODIUM BICARBONATE\SODIUM [Concomitant]
     Active Substance: POLYETHYLENE GLYCOL 3350\POTASSIUM CHLORIDE\SODIUM BICARBONATE\SODIUM CHLORIDE
  585. POLYETHYLENE GLYCOL 3350\POTASSIUM CHLORIDE\SODIUM BICARBONATE\SODIUM [Concomitant]
     Active Substance: POLYETHYLENE GLYCOL 3350\POTASSIUM CHLORIDE\SODIUM BICARBONATE\SODIUM CHLORIDE
  586. POLYETHYLENE GLYCOL 3350\POTASSIUM CHLORIDE\SODIUM BICARBONATE\SODIUM [Concomitant]
     Active Substance: POLYETHYLENE GLYCOL 3350\POTASSIUM CHLORIDE\SODIUM BICARBONATE\SODIUM CHLORIDE
  587. POLYETHYLENE GLYCOL 3350\POTASSIUM CHLORIDE\SODIUM BICARBONATE\SODIUM [Concomitant]
     Active Substance: POLYETHYLENE GLYCOL 3350\POTASSIUM CHLORIDE\SODIUM BICARBONATE\SODIUM CHLORIDE
  588. POLYETHYLENE GLYCOL 3350\POTASSIUM CHLORIDE\SODIUM BICARBONATE\SODIUM [Concomitant]
     Active Substance: POLYETHYLENE GLYCOL 3350\POTASSIUM CHLORIDE\SODIUM BICARBONATE\SODIUM CHLORIDE
  589. POLYETHYLENE GLYCOL 3350\POTASSIUM CHLORIDE\SODIUM BICARBONATE\SODIUM [Concomitant]
     Active Substance: POLYETHYLENE GLYCOL 3350\POTASSIUM CHLORIDE\SODIUM BICARBONATE\SODIUM CHLORIDE
  590. METHOTREXATE [Concomitant]
     Active Substance: METHOTREXATE
     Indication: Colitis ulcerative
  591. METHOTREXATE [Concomitant]
     Active Substance: METHOTREXATE
  592. METHOTREXATE [Concomitant]
     Active Substance: METHOTREXATE
  593. METHOTREXATE [Concomitant]
     Active Substance: METHOTREXATE
  594. METHOTREXATE [Concomitant]
     Active Substance: METHOTREXATE
  595. METHOTREXATE [Concomitant]
     Active Substance: METHOTREXATE
  596. METHOTREXATE [Concomitant]
     Active Substance: METHOTREXATE
  597. METHOTREXATE [Concomitant]
     Active Substance: METHOTREXATE
  598. MINERAL OIL [Concomitant]
     Active Substance: MINERAL OIL
     Indication: Ill-defined disorder
  599. MINERAL OIL [Concomitant]
     Active Substance: MINERAL OIL
  600. NAPHAZOLINE HYDROCHLORIDE [Concomitant]
     Active Substance: NAPHAZOLINE HYDROCHLORIDE
     Indication: Ill-defined disorder
  601. NAPHAZOLINE HYDROCHLORIDE [Concomitant]
     Active Substance: NAPHAZOLINE HYDROCHLORIDE
  602. NITROFURANTOIN [Concomitant]
     Active Substance: NITROFURANTOIN
     Indication: Product used for unknown indication
  603. NITROFURANTOIN [Concomitant]
     Active Substance: NITROFURANTOIN
  604. PARAFFIN [Concomitant]
     Active Substance: PARAFFIN
     Indication: Product used for unknown indication
  605. PARAFFIN [Concomitant]
     Active Substance: PARAFFIN
  606. PRAVASTATIN [Concomitant]
     Active Substance: PRAVASTATIN
     Indication: Product used for unknown indication
  607. PRAVASTATIN [Concomitant]
     Active Substance: PRAVASTATIN
  608. PREGABALIN [Concomitant]
     Active Substance: PREGABALIN
     Indication: Product used for unknown indication
  609. PREGABALIN [Concomitant]
     Active Substance: PREGABALIN
  610. RAMIPRIL [Concomitant]
     Active Substance: RAMIPRIL
     Indication: Ill-defined disorder
  611. RAMIPRIL [Concomitant]
     Active Substance: RAMIPRIL
  612. RIVAROXABAN [Concomitant]
     Active Substance: RIVAROXABAN
     Indication: Product used for unknown indication
  613. RIVAROXABAN [Concomitant]
     Active Substance: RIVAROXABAN
  614. ROSUVASTATIN [Concomitant]
     Active Substance: ROSUVASTATIN
     Indication: Product used for unknown indication
  615. ROSUVASTATIN [Concomitant]
     Active Substance: ROSUVASTATIN
  616. TAMSULOSIN HYDROCHLORIDE [Concomitant]
     Active Substance: TAMSULOSIN HYDROCHLORIDE
     Indication: Ill-defined disorder
  617. TAMSULOSIN HYDROCHLORIDE [Concomitant]
     Active Substance: TAMSULOSIN HYDROCHLORIDE
  618. TETRAHYDROZOLINE HYDROCHLORIDE [Concomitant]
     Active Substance: TETRAHYDROZOLINE HYDROCHLORIDE
     Indication: Product used for unknown indication
  619. TETRAHYDROZOLINE HYDROCHLORIDE [Concomitant]
     Active Substance: TETRAHYDROZOLINE HYDROCHLORIDE
  620. TOFACITINIB CITRATE [Concomitant]
     Active Substance: TOFACITINIB CITRATE
     Indication: Colitis ulcerative
     Route: 048
  621. TOFACITINIB CITRATE [Concomitant]
     Active Substance: TOFACITINIB CITRATE
     Indication: Ill-defined disorder
     Route: 048
  622. TOFACITINIB CITRATE [Concomitant]
     Active Substance: TOFACITINIB CITRATE
     Route: 048
  623. TOFACITINIB CITRATE [Concomitant]
     Active Substance: TOFACITINIB CITRATE
     Route: 048
  624. TOFACITINIB CITRATE [Concomitant]
     Active Substance: TOFACITINIB CITRATE
  625. TOFACITINIB CITRATE [Concomitant]
     Active Substance: TOFACITINIB CITRATE
  626. TOFACITINIB CITRATE [Concomitant]
     Active Substance: TOFACITINIB CITRATE
     Route: 048
  627. TOFACITINIB CITRATE [Concomitant]
     Active Substance: TOFACITINIB CITRATE
     Route: 048
  628. TOFACITINIB CITRATE [Concomitant]
     Active Substance: TOFACITINIB CITRATE
     Route: 048
  629. TOFACITINIB CITRATE [Concomitant]
     Active Substance: TOFACITINIB CITRATE
     Route: 048

REACTIONS (54)
  - Abdominal discomfort [Not Recovered/Not Resolved]
  - Condition aggravated [Not Recovered/Not Resolved]
  - Frequent bowel movements [Not Recovered/Not Resolved]
  - Colitis ulcerative [Not Recovered/Not Resolved]
  - Alcohol poisoning [Not Recovered/Not Resolved]
  - Burns second degree [Not Recovered/Not Resolved]
  - Deep vein thrombosis [Not Recovered/Not Resolved]
  - Steroid dependence [Not Recovered/Not Resolved]
  - Bronchiectasis [Not Recovered/Not Resolved]
  - Cardiac murmur [Not Recovered/Not Resolved]
  - Catarrh [Not Recovered/Not Resolved]
  - Confusional state [Not Recovered/Not Resolved]
  - Dysgeusia [Not Recovered/Not Resolved]
  - Gingival pain [Not Recovered/Not Resolved]
  - Hypopnoea [Not Recovered/Not Resolved]
  - Nightmare [Not Recovered/Not Resolved]
  - Parosmia [Not Recovered/Not Resolved]
  - Tubulointerstitial nephritis [Not Recovered/Not Resolved]
  - Swollen tongue [Not Recovered/Not Resolved]
  - Stress [Not Recovered/Not Resolved]
  - Somnolence [Not Recovered/Not Resolved]
  - Impaired work ability [Not Recovered/Not Resolved]
  - Loss of personal independence in daily activities [Not Recovered/Not Resolved]
  - Adverse drug reaction [Not Recovered/Not Resolved]
  - Arthritis [Not Recovered/Not Resolved]
  - Haematochezia [Not Recovered/Not Resolved]
  - COVID-19 [Not Recovered/Not Resolved]
  - Cerebrovascular accident [Not Recovered/Not Resolved]
  - Depression [Not Recovered/Not Resolved]
  - Eczema [Not Recovered/Not Resolved]
  - Fatigue [Not Recovered/Not Resolved]
  - Headache [Not Recovered/Not Resolved]
  - Migraine [Not Recovered/Not Resolved]
  - Pain [Not Recovered/Not Resolved]
  - Pain in extremity [Not Recovered/Not Resolved]
  - Palpitations [Not Recovered/Not Resolved]
  - Pulmonary embolism [Not Recovered/Not Resolved]
  - Pyrexia [Not Recovered/Not Resolved]
  - Rash [Not Recovered/Not Resolved]
  - Rectal haemorrhage [Not Recovered/Not Resolved]
  - Rhinitis [Not Recovered/Not Resolved]
  - Systemic lupus erythematosus [Not Recovered/Not Resolved]
  - Tinnitus [Not Recovered/Not Resolved]
  - Vertigo [Not Recovered/Not Resolved]
  - Weight decreased [Not Recovered/Not Resolved]
  - Accidental overdose [Not Recovered/Not Resolved]
  - Drug ineffective [Not Recovered/Not Resolved]
  - Inappropriate schedule of product administration [Not Recovered/Not Resolved]
  - Intentional product use issue [Not Recovered/Not Resolved]
  - Medication error [Not Recovered/Not Resolved]
  - Off label use [Not Recovered/Not Resolved]
  - Product use in unapproved indication [Not Recovered/Not Resolved]
  - Intentional product use issue [Unknown]
  - Intentional product use issue [Unknown]
